FAERS Safety Report 6278577-3 (Version None)
Quarter: 2009Q3

REPORT INFORMATION
  Report Type: 
  Country: None (occurrence: None)
  Receive Date: 20090722
  Receipt Date: 20081023
  Transmission Date: 20100115
  Serious: No
  Sender: FDA-Public Use
  Company Number: US-BAUSCH-2008BL004565

PATIENT
  Age: 14 Year
  Sex: Female

DRUGS (2)
  1. OPCON-A [Suspect]
     Route: 047
     Dates: start: 20081023, end: 20081023
  2. MULTI-VITAMINS [Concomitant]

REACTIONS (2)
  - MYDRIASIS [None]
  - WRONG DRUG ADMINISTERED [None]
